FAERS Safety Report 7907275-2 (Version None)
Quarter: 2011Q4

REPORT INFORMATION
  Report Type: 
  Country: None (occurrence: None)
  Receive Date: 20111110
  Receipt Date: 20111028
  Transmission Date: 20120403
  Serious: Yes (Death, Hospitalization)
  Sender: FDA-Public Use
  Company Number: US-GLAXOSMITHKLINE-A0908192A

PATIENT
  Age: 55 Year
  Sex: Male

DRUGS (8)
  1. GLUCOPHAGE [Concomitant]
  2. DIOVAN [Concomitant]
  3. WELCHOL [Concomitant]
  4. TRICOR [Concomitant]
  5. AVANDIA [Suspect]
     Indication: DIABETES MELLITUS
     Dosage: 8MG PER DAY
     Route: 048
     Dates: start: 20050501, end: 20090808
  6. AMARYL [Concomitant]
     Dates: end: 20090808
  7. TARKA [Concomitant]
  8. LIPITOR [Concomitant]

REACTIONS (25)
  - TRICUSPID VALVE INCOMPETENCE [None]
  - TREATMENT NONCOMPLIANCE [None]
  - URINARY TRACT INFECTION [None]
  - RENAL FAILURE ACUTE [None]
  - CARDIAC FAILURE CONGESTIVE [None]
  - MITRAL VALVE INCOMPETENCE [None]
  - STAPHYLOCOCCAL BACTERAEMIA [None]
  - OSTEOMYELITIS [None]
  - DEATH [None]
  - PYELONEPHRITIS ACUTE [None]
  - ANAEMIA [None]
  - ACUTE RESPIRATORY FAILURE [None]
  - HYPOXIC-ISCHAEMIC ENCEPHALOPATHY [None]
  - PULMONARY HYPERTENSION [None]
  - INTERVERTEBRAL DISCITIS [None]
  - ARTHRITIS BACTERIAL [None]
  - PERICARDIAL EFFUSION [None]
  - CARDIO-RESPIRATORY ARREST [None]
  - BLOOD PRESSURE INADEQUATELY CONTROLLED [None]
  - ADRENAL MASS [None]
  - HEART INJURY [None]
  - HYPOKALAEMIA [None]
  - HYPOGLYCAEMIA [None]
  - DIARRHOEA [None]
  - HYPERTENSION [None]
